FAERS Safety Report 14609218 (Version 7)
Quarter: 2022Q2

REPORT INFORMATION
  Report Type: Report from Study
  Country: JP (occurrence: JP)
  Receive Date: 20180307
  Receipt Date: 20220601
  Transmission Date: 20220721
  Serious: Yes (Hospitalization, Other)
  Sender: FDA-Public Use
  Company Number: JP-BIOGEN-2018BI00537240

PATIENT
  Age: 0 Year
  Sex: Female
  Weight: 6.3 kg

DRUGS (24)
  1. SPINRAZA [Suspect]
     Active Substance: NUSINERSEN
     Indication: Spinal muscular atrophy
     Route: 050
     Dates: start: 20170807, end: 20170807
  2. SPINRAZA [Suspect]
     Active Substance: NUSINERSEN
     Route: 050
     Dates: start: 20170821, end: 20170821
  3. SPINRAZA [Suspect]
     Active Substance: NUSINERSEN
     Route: 050
     Dates: start: 20170904, end: 20170904
  4. SPINRAZA [Suspect]
     Active Substance: NUSINERSEN
     Route: 050
     Dates: start: 20171013, end: 20171013
  5. SPINRAZA [Suspect]
     Active Substance: NUSINERSEN
     Route: 050
     Dates: start: 20180213, end: 20180213
  6. SPINRAZA [Suspect]
     Active Substance: NUSINERSEN
     Route: 050
     Dates: start: 20180612, end: 20180612
  7. SPINRAZA [Suspect]
     Active Substance: NUSINERSEN
     Route: 050
     Dates: start: 20181015, end: 20181015
  8. SPINRAZA [Suspect]
     Active Substance: NUSINERSEN
     Route: 050
     Dates: start: 20190218
  9. SPINRAZA [Suspect]
     Active Substance: NUSINERSEN
     Route: 050
     Dates: start: 20200316, end: 20210714
  10. MIDAZOLAM [Suspect]
     Active Substance: MIDAZOLAM
     Indication: Product used for unknown indication
     Route: 065
  11. FENTANYL CITRATE [Suspect]
     Active Substance: FENTANYL CITRATE
     Indication: Product used for unknown indication
     Route: 065
  12. THIOPENTAL [Concomitant]
     Active Substance: THIOPENTAL
     Indication: Anaesthesia procedure
     Route: 050
     Dates: start: 20170807, end: 20170807
  13. THIOPENTAL [Concomitant]
     Active Substance: THIOPENTAL
     Route: 050
     Dates: start: 20170821, end: 20170821
  14. THIOPENTAL [Concomitant]
     Active Substance: THIOPENTAL
     Route: 050
     Dates: start: 20170904, end: 20170904
  15. THIOPENTAL [Concomitant]
     Active Substance: THIOPENTAL
     Route: 050
     Dates: start: 20171013, end: 20171013
  16. THIOPENTAL [Concomitant]
     Active Substance: THIOPENTAL
     Route: 050
     Dates: start: 20180213, end: 20180213
  17. THIOPENTAL [Concomitant]
     Active Substance: THIOPENTAL
     Route: 050
     Dates: start: 20180612, end: 20180612
  18. THIOPENTAL [Concomitant]
     Active Substance: THIOPENTAL
     Route: 050
     Dates: start: 20181015, end: 20181015
  19. THIOPENTAL [Concomitant]
     Active Substance: THIOPENTAL
     Route: 050
  20. CARBOCYSTEINE [Concomitant]
     Active Substance: CARBOCYSTEINE
     Indication: Spinal muscular atrophy
  21. MOSAPRIDE CITRATE DIHYDRATE [Concomitant]
     Active Substance: MOSAPRIDE CITRATE DIHYDRATE
     Indication: Gastrooesophageal reflux disease
     Dates: end: 20190701
  22. HERBALS [Concomitant]
     Active Substance: HERBALS
     Indication: Constipation
  23. VONOPRAZAN FUMARATE [Concomitant]
     Active Substance: VONOPRAZAN FUMARATE
     Indication: Gastric haemorrhage
     Dates: start: 20170807
  24. DIMETHICONE [Concomitant]
     Active Substance: DIMETHICONE
     Indication: Abdominal distension
     Dates: start: 20190702

REACTIONS (3)
  - Respiratory syncytial virus infection [Recovered/Resolved]
  - Nasopharyngitis [Unknown]
  - Respiratory failure [Unknown]

NARRATIVE: CASE EVENT DATE: 20180224
